FAERS Safety Report 4519082-1 (Version None)
Quarter: 2004Q4

REPORT INFORMATION
  Report Type: 
  Country: None (occurrence: None)
  Receive Date: 20041206
  Receipt Date: 20041009
  Transmission Date: 20050328
  Serious: Yes (Hospitalization)
  Sender: FDA-Public Use
  Company Number: PHHO2004TR15883

PATIENT
  Age: 43 Year
  Sex: Male
  Weight: 79 kg

DRUGS (4)
  1. CYCLOSPORINE [Suspect]
     Indication: RENAL TRANSPLANT
     Dosage: 200 MG/DAILY
     Route: 048
     Dates: start: 19950314, end: 20041108
  2. STEROIDS NOS [Concomitant]
     Indication: RENAL TRANSPLANT
     Dosage: 5 MG/DAILY
     Route: 048
     Dates: start: 19950314
  3. MYFORTIC [Concomitant]
     Dosage: 1440 MG/DAILY
     Dates: start: 20040822
  4. SIROLIMUS [Concomitant]
     Indication: RENAL TRANSPLANT
     Dosage: 3 MG/DAILY
     Route: 048
     Dates: start: 20041027

REACTIONS (3)
  - BLOOD CREATININE INCREASED [None]
  - BLOOD UREA INCREASED [None]
  - KIDNEY TRANSPLANT REJECTION [None]
